FAERS Safety Report 8543087-7 (Version None)
Quarter: 2012Q3

REPORT INFORMATION
  Report Type: 
  Country: None (occurrence: None)
  Receive Date: 20120727
  Receipt Date: 20110803
  Transmission Date: 20120928
  Serious: No
  Sender: FDA-Public Use
  Company Number: US-MYLANLABS-2011S1015817

PATIENT
  Age: 82 Year
  Sex: Male

DRUGS (6)
  1. TRIAMTERENE [Concomitant]
  2. AMLODIPINE [Concomitant]
  3. VYTORIN [Concomitant]
  4. LEVOTHYROXINE SODIUM [Suspect]
     Indication: HYPOTHYROIDISM
     Route: 048
     Dates: start: 20060101
  5. PLAVIX [Concomitant]
  6. RANEXA [Concomitant]

REACTIONS (1)
  - DYSPHAGIA [None]
